FAERS Safety Report 25141176 (Version 1)
Quarter: 2025Q1

REPORT INFORMATION
  Report Type: Spontaneous
  Country: US (occurrence: None)
  Receive Date: 20250328
  Receipt Date: 20250328
  Transmission Date: 20250408
  Serious: No
  Sender: FDA-CTU
  Company Number: None

PATIENT
  Age: 72 Year
  Sex: Female
  Weight: 103.5 kg

DRUGS (9)
  1. RECLAST [Suspect]
     Active Substance: ZOLEDRONIC ACID
     Indication: Osteoporosis
     Dates: start: 20250322, end: 20250322
  2. CITALOPRAM [Concomitant]
     Active Substance: CITALOPRAM
  3. CARVEDILOL [Concomitant]
     Active Substance: CARVEDILOL
  4. LASIX [Concomitant]
     Active Substance: FUROSEMIDE
  5. ELIQUIS [Concomitant]
     Active Substance: APIXABAN
  6. VITAMIN D3 [Concomitant]
     Active Substance: CHOLECALCIFEROL
  7. B viamins [Concomitant]
  8. MAGNESIUM [Concomitant]
     Active Substance: MAGNESIUM
  9. LUTEIN [Concomitant]
     Active Substance: LUTEIN

REACTIONS (5)
  - Infusion related reaction [None]
  - Pain in jaw [None]
  - Drug ineffective [None]
  - Mastication disorder [None]
  - Dysphagia [None]

NARRATIVE: CASE EVENT DATE: 20250322
